FAERS Safety Report 16373909 (Version 1)
Quarter: 2019Q2

REPORT INFORMATION
  Report Type: Spontaneous
  Country: IT (occurrence: IT)
  Receive Date: 20190530
  Receipt Date: 20190530
  Transmission Date: 20190711
  Serious: Yes (Other)
  Sender: FDA-Public Use
  Company Number: IT-GILEAD-2019-0410552

PATIENT
  Age: 84 Year
  Sex: Male

DRUGS (5)
  1. FOLINA [FOLIC ACID] [Concomitant]
     Indication: ANAEMIA
     Route: 048
  2. FERRO-GRAD [Concomitant]
     Active Substance: FERROUS SULFATE
     Indication: ANAEMIA
     Route: 048
  3. FERRO-GRAD [Concomitant]
     Active Substance: FERROUS SULFATE
     Route: 048
  4. EPCLUSA [Suspect]
     Active Substance: SOFOSBUVIR\VELPATASVIR
     Indication: CHRONIC HEPATITIS C
     Dosage: 1 DOSAGE FORM, QD
     Route: 048
     Dates: start: 20190207, end: 20190225
  5. PROPRANOLOL [Concomitant]
     Active Substance: PROPRANOLOL HYDROCHLORIDE
     Dates: start: 20181206, end: 20190222

REACTIONS (4)
  - Abnormal dreams [Recovered/Resolved]
  - Vertigo [Recovered/Resolved]
  - Hallucination [Recovered/Resolved]
  - Headache [Recovered/Resolved]

NARRATIVE: CASE EVENT DATE: 20190222
